FAERS Safety Report 20838384 (Version 1)
Quarter: 2022Q2

REPORT INFORMATION
  Report Type: Spontaneous
  Country: SE (occurrence: SE)
  Receive Date: 20220517
  Receipt Date: 20220517
  Transmission Date: 20220721
  Serious: Yes (Disabling, Other)
  Sender: FDA-Public Use
  Company Number: None

PATIENT
  Age: 63 Year
  Sex: Female

DRUGS (6)
  1. LINEZOLID [Suspect]
     Active Substance: LINEZOLID
     Indication: Tuberculosis
     Route: 065
     Dates: end: 20220412
  2. METOPROLOL [Concomitant]
     Active Substance: METOPROLOL
  3. PYRAZINAMIDE [Concomitant]
     Active Substance: PYRAZINAMIDE
  4. ATORVASTATIN [Concomitant]
     Active Substance: ATORVASTATIN
  5. ISONIAZID [Concomitant]
     Active Substance: ISONIAZID
  6. TICAGRELOR [Concomitant]
     Active Substance: TICAGRELOR

REACTIONS (1)
  - Polyneuropathy [Not Recovered/Not Resolved]

NARRATIVE: CASE EVENT DATE: 20220317
